FAERS Safety Report 10040312 (Version 1)
Quarter: 2014Q1

REPORT INFORMATION
  Report Type: Spontaneous
  Country: IR (occurrence: IR)
  Receive Date: 20140327
  Receipt Date: 20140327
  Transmission Date: 20141002
  Serious: Yes (Hospitalization, Other)
  Sender: FDA-Public Use
  Company Number: IR-B.I. PHARMACEUTICALS,INC./RIDGEFIELD-2014-BI-12780GD

PATIENT
  Age: 27 Year
  Sex: Male

DRUGS (4)
  1. CLONIDINE [Suspect]
     Indication: PRODUCT USED FOR UNKNOWN INDICATION
     Dosage: 2 MG
     Route: 065
  2. CLONAZEPAM [Suspect]
     Indication: PRODUCT USED FOR UNKNOWN INDICATION
     Dosage: 20 MG
     Route: 065
  3. ALPRAZOLAM [Suspect]
     Indication: PRODUCT USED FOR UNKNOWN INDICATION
     Dosage: 10 MG
     Route: 065
  4. MORPHINE [Suspect]
     Indication: PRODUCT USED FOR UNKNOWN INDICATION
     Route: 065

REACTIONS (13)
  - Toxicity to various agents [Unknown]
  - Loss of consciousness [Recovered/Resolved]
  - Agitation [Recovered/Resolved]
  - Respiratory acidosis [Recovered/Resolved]
  - Metabolic alkalosis [Recovered/Resolved]
  - Bradycardia [Unknown]
  - Electrocardiogram QRS complex prolonged [Unknown]
  - Electrocardiogram QT prolonged [Unknown]
  - Electrocardiogram PR prolongation [Unknown]
  - Hallucinations, mixed [Unknown]
  - Aggression [Unknown]
  - Speech disorder [Unknown]
  - Hypotension [Unknown]
